FAERS Safety Report 6086942-2 (Version None)
Quarter: 2009Q1

REPORT INFORMATION
  Report Type: 
  Country: None (occurrence: None)
  Receive Date: 20090223
  Receipt Date: 20090210
  Transmission Date: 20090719
  Serious: Yes (Other)
  Sender: FDA-Public Use
  Company Number: US-ROCHE-602462

PATIENT
  Sex: Female
  Weight: 56.7 kg

DRUGS (21)
  1. BONIVA [Suspect]
     Indication: OSTEOPOROSIS
     Dosage: OTHER INDICATION: TO MAKE HER BONES STRONGER
     Route: 048
     Dates: start: 20081104, end: 20081211
  2. LASIX [Concomitant]
     Route: 048
     Dates: start: 20080930
  3. CORTIAZEM [Concomitant]
  4. COUMADIN [Concomitant]
  5. ZETIA [Concomitant]
     Route: 048
     Dates: start: 20061226
  6. MULTI-VITAMINS [Concomitant]
  7. FISH OIL [Concomitant]
  8. MEPRAZOL [Concomitant]
     Dosage: DRUG REPORTED AS MEPROSOL
  9. CARTIA XT [Concomitant]
     Dates: start: 20090108
  10. HYDROCODONE [Concomitant]
     Dosage: DOSE: 10 MG- 650 MG, DRUG: HYDROCODONE-ACETAMINOPHEN
     Dates: start: 20090108
  11. NEXIUM [Concomitant]
     Route: 048
     Dates: start: 20081217
  12. ALPRAZOLAM [Concomitant]
     Dosage: DOSAGE REGIMEN: AS DIRECTED
     Dates: start: 20081104
  13. ZOLOFT [Concomitant]
     Route: 048
     Dates: start: 20080930
  14. LANOXIN [Concomitant]
     Dosage: DOSAGE: 125 MCG 1/2 DAILY
     Dates: start: 20080930
  15. OMEPRAZOLE [Concomitant]
     Route: 048
     Dates: start: 20080812
  16. IRON [Concomitant]
     Dosage: DOSE: 325 (65) MG ONCE DAILY
     Route: 048
     Dates: start: 20080805
  17. K-DUR [Concomitant]
     Route: 048
     Dates: start: 20080805
  18. ALBUTEROL [Concomitant]
     Dosage: DOSE: 2.5 MG/3 ML, DRUG: ALBUTEROL SULPHATE
     Dates: start: 20080707
  19. OS-CAL 500 + D [Concomitant]
     Dosage: DOSE: 500 MG- 400
     Dates: start: 20080415
  20. WARFARIN SODIUM [Concomitant]
     Dosage: DOSAGE: AS DIRECTED
     Dates: start: 20080324
  21. ASPIRIN [Concomitant]
     Dosage: DRUG: ASPIRIN EC
     Route: 048
     Dates: start: 20021209

REACTIONS (7)
  - ABASIA [None]
  - BONE PAIN [None]
  - CHEST PAIN [None]
  - DIZZINESS [None]
  - FALL [None]
  - MUSCULOSKELETAL PAIN [None]
  - TREMOR [None]
